FAERS Safety Report 6733649-1 (Version None)
Quarter: 2010Q2

REPORT INFORMATION
  Report Type: 
  Country: None (occurrence: None)
  Receive Date: 20100518
  Receipt Date: 20100503
  Transmission Date: 20101027
  Serious: Yes (Hospitalization)
  Sender: FDA-Public Use
  Company Number: 2010001692

PATIENT
  Sex: Female
  Weight: 52 kg

DRUGS (3)
  1. ERLOTINIB (ERLOTINIB HCI) (TABLET) (ERLOTINIB) [Suspect]
     Indication: PANCREATIC CARCINOMA
     Dosage: 100 MG, QD, ORAL
     Route: 048
     Dates: start: 20100325, end: 20100407
  2. GEMCITABINE [Suspect]
     Indication: PANCREATIC CARCINOMA
     Dosage: 1000 MG/M2, DAYS 1, 8 AND 15, INTRAVENOUS
     Route: 042
     Dates: start: 20100325, end: 20100331
  3. IMC-A12 [Suspect]
     Indication: PANCREATIC CARCINOMA
     Dosage: 6 MG/KG, DAYS 1, 8, 15 AND 22, INTRAVENOUS
     Route: 042
     Dates: start: 20100325, end: 20100331

REACTIONS (15)
  - ABDOMINAL PAIN [None]
  - ASCITES [None]
  - ASPARTATE AMINOTRANSFERASE ABNORMAL [None]
  - BLOOD ALKALINE PHOSPHATASE ABNORMAL [None]
  - BLOOD CREATININE INCREASED [None]
  - BLOOD UREA INCREASED [None]
  - DRUG TOXICITY [None]
  - HAEMOGLOBIN ABNORMAL [None]
  - HYPERBILIRUBINAEMIA [None]
  - HYPERURICAEMIA [None]
  - HYPOALBUMINAEMIA [None]
  - HYPONATRAEMIA [None]
  - MUSCULAR WEAKNESS [None]
  - OEDEMA PERIPHERAL [None]
  - RENAL DISORDER [None]
